FAERS Safety Report 24907267 (Version 1)
Quarter: 2025Q1

REPORT INFORMATION
  Report Type: Spontaneous
  Country: TH (occurrence: TH)
  Receive Date: 20250130
  Receipt Date: 20250130
  Transmission Date: 20250409
  Serious: Yes (Hospitalization)
  Sender: PFIZER
  Company Number: TH-PFIZER INC-PV202500011548

PATIENT

DRUGS (1)
  1. LORLATINIB [Suspect]
     Active Substance: LORLATINIB
     Indication: Non-small cell lung cancer
     Dates: start: 20240527

REACTIONS (1)
  - Pseudocellulitis [Unknown]

NARRATIVE: CASE EVENT DATE: 20241201
